FAERS Safety Report 6380200-4 (Version None)
Quarter: 2009Q3

REPORT INFORMATION
  Report Type: 
  Country: None (occurrence: None)
  Receive Date: 20090929
  Receipt Date: 20090924
  Transmission Date: 20100115
  Serious: Yes (Other)
  Sender: FDA-Public Use
  Company Number: PT-BAYER-200926407GPV

PATIENT
  Sex: Female

DRUGS (4)
  1. BETAFERON [Suspect]
     Indication: MULTIPLE SCLEROSIS
     Dosage: TOTAL DAILY DOSE: 125 ?G
     Route: 058
     Dates: start: 20090401
  2. BETAFERON [Suspect]
     Dosage: TOTAL DAILY DOSE: 250 ?G
     Route: 058
     Dates: start: 20090501
  3. IBUPROFEN [Concomitant]
     Indication: DRUG USE FOR UNKNOWN INDICATION
     Route: 048
  4. PARACETAMOL [Concomitant]
     Indication: DRUG USE FOR UNKNOWN INDICATION
     Route: 048

REACTIONS (3)
  - ARRHYTHMIA [None]
  - CHEST DISCOMFORT [None]
  - PALPITATIONS [None]
